FAERS Safety Report 17471858 (Version 1)
Quarter: 2020Q1

REPORT INFORMATION
  Report Type: Spontaneous
  Country: US (occurrence: US)
  Receive Date: 20200228
  Receipt Date: 20200228
  Transmission Date: 20200409
  Serious: Yes (Death, Other)
  Sender: FDA-Public Use
  Company Number: US-MICRO LABS LIMITED-ML2020-00482

PATIENT
  Age: 65 Year
  Sex: Female

DRUGS (6)
  1. VANCOMYCIN [Suspect]
     Active Substance: VANCOMYCIN
     Indication: NECROTISING FASCIITIS
     Dosage: 11 DAYS
  2. CLINDAMYCIN. [Suspect]
     Active Substance: CLINDAMYCIN
     Indication: OSTEOMYELITIS
  3. VANCOMYCIN [Suspect]
     Active Substance: VANCOMYCIN
     Indication: OSTEOMYELITIS
  4. CLINDAMYCIN. [Suspect]
     Active Substance: CLINDAMYCIN
     Indication: NECROTISING FASCIITIS
     Dosage: 11 DAYS
  5. MEROPENEM. [Suspect]
     Active Substance: MEROPENEM
     Indication: NECROTISING FASCIITIS
     Dosage: 11 DAYS
  6. MEROPENEM. [Suspect]
     Active Substance: MEROPENEM
     Indication: OSTEOMYELITIS

REACTIONS (1)
  - Drug ineffective [Fatal]
